FAERS Safety Report 5644904-0 (Version None)
Quarter: 2008Q1

REPORT INFORMATION
  Report Type: 
  Country: None (occurrence: None)
  Receive Date: 20080229
  Receipt Date: 20071016
  Transmission Date: 20080703
  Serious: No
  Sender: FDA-Public Use
  Company Number: A0687990A

PATIENT
  Age: 34 Year
  Sex: Female

DRUGS (2)
  1. VALTREX [Suspect]
     Indication: GENITAL HERPES
     Dosage: 1G PER DAY
     Route: 048
     Dates: start: 20071004, end: 20071014
  2. NO CONCURRENT MEDICATION [Concomitant]

REACTIONS (1)
  - HEARING IMPAIRED [None]
